FAERS Safety Report 6624119-X (Version None)
Quarter: 2010Q1

REPORT INFORMATION
  Report Type: 
  Country: None (occurrence: None)
  Receive Date: 20100310
  Receipt Date: 20091023
  Transmission Date: 20100710
  Serious: No
  Sender: FDA-Public Use
  Company Number: US-BIOGENIDEC-2009BI034222

PATIENT
  Age: 36 Year
  Sex: Female

DRUGS (4)
  1. AVONEX [Suspect]
     Indication: MULTIPLE SCLEROSIS
     Route: 030
     Dates: start: 20030101, end: 20030101
  2. AVONEX [Suspect]
     Route: 030
     Dates: start: 20030101, end: 20060101
  3. AVONEX [Suspect]
     Route: 030
     Dates: start: 20060101
  4. PROVIGIL [Concomitant]
     Indication: MEMORY IMPAIRMENT
     Route: 048

REACTIONS (1)
  - MEMORY IMPAIRMENT [None]
